FAERS Safety Report 10191484 (Version 1)
Quarter: 2014Q2

REPORT INFORMATION
  Report Type: Spontaneous
  Country: US (occurrence: None)
  Receive Date: 20140522
  Receipt Date: 20140522
  Transmission Date: 20141212
  Serious: No
  Sender: FDA-Public Use
  Company Number: None

PATIENT
  Age: 54 Year
  Sex: Female

DRUGS (1)
  1. PACLITAXEL [Suspect]
     Dosage: PART OF CHEMO REGM?
     Dates: start: 20140425, end: 20140425

REACTIONS (3)
  - Restless legs syndrome [None]
  - Dyskinesia [None]
  - Infusion related reaction [None]
